FAERS Safety Report 10249770 (Version 1)
Quarter: 2014Q2

REPORT INFORMATION
  Report Type: Spontaneous
  Country: FR (occurrence: FR)
  Receive Date: 20140620
  Receipt Date: 20140620
  Transmission Date: 20141212
  Serious: Yes (Disabling)
  Sender: FDA-Public Use
  Company Number: PHHY2014FR076103

PATIENT
  Sex: Female

DRUGS (5)
  1. GLIVEC [Suspect]
     Indication: CHRONIC MYELOID LEUKAEMIA
     Dosage: 400 MG, QD
     Route: 048
     Dates: start: 201003
  2. GLIVEC [Suspect]
     Dosage: 300 MG, QD
     Route: 048
     Dates: start: 2012
  3. ERYTHROPOIETIN [Concomitant]
     Indication: ANAEMIA
     Dosage: EVERY MONTH
  4. ERYTHROPOIETIN [Concomitant]
     Dosage: EVERY 15 DAYS
  5. ERYTHROPOIETIN [Concomitant]
     Dosage: EVERY WEEK

REACTIONS (3)
  - Gait disturbance [Not Recovered/Not Resolved]
  - Myalgia [Not Recovered/Not Resolved]
  - Bone pain [Not Recovered/Not Resolved]
